FAERS Safety Report 7135375-6 (Version None)
Quarter: 2010Q4

REPORT INFORMATION
  Report Type: 
  Country: None (occurrence: None)
  Receive Date: 20101203
  Receipt Date: 20101129
  Transmission Date: 20110411
  Serious: Yes (Other)
  Sender: FDA-Public Use
  Company Number: US-PFIZER INC-2010160621

PATIENT

DRUGS (3)
  1. ADRIAMYCIN PFS [Suspect]
  2. CYTOXAN [Suspect]
  3. TAXOTERE [Suspect]

REACTIONS (1)
  - PALMAR-PLANTAR ERYTHRODYSAESTHESIA SYNDROME [None]
